FAERS Safety Report 18520154 (Version 1)
Quarter: 2020Q4

REPORT INFORMATION
  Report Type: Report from Study
  Country: None (occurrence: US)
  Receive Date: 20201118
  Receipt Date: 20201118
  Transmission Date: 20210114
  Serious: Yes (Hospitalization, Other)
  Sender: FDA-Public Use
  Company Number: US-ABBVIE-20K-163-3622575-00

PATIENT
  Age: 41 Year
  Sex: Female
  Weight: 58.57 kg

DRUGS (3)
  1. AIRBORNE [Concomitant]
     Active Substance: HERBALS\MINERALS\VITAMINS
     Indication: IMMUNE SYSTEM DISORDER
  2. SKYRIZI [Suspect]
     Active Substance: RISANKIZUMAB-RZAA
     Indication: PSORIASIS
     Route: 058
     Dates: start: 202007
  3. IRON [Concomitant]
     Active Substance: IRON
     Indication: BLOOD COUNT ABNORMAL

REACTIONS (7)
  - Oedema [Recovered/Resolved]
  - Upper gastrointestinal haemorrhage [Recovered/Resolved]
  - White blood cell count decreased [Recovered/Resolved]
  - Blood magnesium decreased [Recovered/Resolved]
  - Erythema [Recovered/Resolved]
  - Red blood cell count decreased [Recovered/Resolved]
  - Haemoglobin decreased [Recovered/Resolved]

NARRATIVE: CASE EVENT DATE: 20201013
